FAERS Safety Report 15965309 (Version 1)
Quarter: 2019Q1

REPORT INFORMATION
  Report Type: Report from Study
  Country: CN (occurrence: CN)
  Receive Date: 20190215
  Receipt Date: 20190215
  Transmission Date: 20190418
  Serious: Yes (Other)
  Sender: FDA-Public Use
  Company Number: CN-ROCHE-2259655

PATIENT
  Sex: Female

DRUGS (2)
  1. CAPECITABINE. [Suspect]
     Active Substance: CAPECITABINE
     Indication: COLORECTAL CANCER METASTATIC
     Route: 065
  2. BEVACIZUMAB. [Suspect]
     Active Substance: BEVACIZUMAB
     Indication: COLORECTAL CANCER METASTATIC
     Route: 065

REACTIONS (7)
  - Mucosal inflammation [Unknown]
  - Peripheral sensory neuropathy [Unknown]
  - Dehydration [Unknown]
  - Toxicity to various agents [Unknown]
  - Diarrhoea [Unknown]
  - Haematotoxicity [Unknown]
  - Myocardial ischaemia [Unknown]
